FAERS Safety Report 21455935 (Version 1)
Quarter: 2022Q4

REPORT INFORMATION
  Report Type: Spontaneous
  Country: US (occurrence: US)
  Receive Date: 20221014
  Receipt Date: 20221014
  Transmission Date: 20230113
  Serious: Yes (Other)
  Sender: FDA-Public Use
  Company Number: US-JNJFOC-20221007753

PATIENT
  Age: 47 Year
  Sex: Male

DRUGS (3)
  1. ELMIRON [Suspect]
     Active Substance: PENTOSAN POLYSULFATE SODIUM
     Indication: Prostatitis
     Dosage: PPS 100 MG THRICE DAILY
     Route: 048
     Dates: start: 19961115
  2. ELMIRON [Suspect]
     Active Substance: PENTOSAN POLYSULFATE SODIUM
     Indication: Cystitis
     Dosage: TAKING PPS INTERMITTENTLY/AND PRN
     Route: 048
  3. ELMIRON [Suspect]
     Active Substance: PENTOSAN POLYSULFATE SODIUM
     Dosage: PPS 100 MG TWICE DAILY
     Route: 048

REACTIONS (4)
  - Dry age-related macular degeneration [Unknown]
  - Treatment noncompliance [Unknown]
  - Off label use [Unknown]
  - Off label use [Unknown]

NARRATIVE: CASE EVENT DATE: 19961115
